FAERS Safety Report 6890199-X (Version None)
Quarter: 2010Q3

REPORT INFORMATION
  Report Type: 
  Country: None (occurrence: None)
  Receive Date: 20100730
  Receipt Date: 20080828
  Transmission Date: 20110219
  Serious: Yes (Hospitalization)
  Sender: FDA-Public Use
  Company Number: US-PFIZER INC-2008072912

PATIENT
  Sex: Female
  Weight: 72.57 kg

DRUGS (4)
  1. VIBRAMYCIN [Suspect]
     Indication: INFECTION
     Dates: start: 19870101
  2. PENICILLIN NOS [Concomitant]
  3. KEFLEX [Concomitant]
  4. DURICEF [Concomitant]

REACTIONS (3)
  - ILL-DEFINED DISORDER [None]
  - LOCALISED INFECTION [None]
  - PELVIC INFECTION [None]
